FAERS Safety Report 18624778 (Version 1)
Quarter: 2020Q4

REPORT INFORMATION
  Report Type: Spontaneous
  Country: PL (occurrence: PL)
  Receive Date: 20201216
  Receipt Date: 20201216
  Transmission Date: 20210114
  Serious: Yes (Other)
  Sender: FDA-Public Use
  Company Number: NVSC2020PL331161

PATIENT
  Sex: Female

DRUGS (4)
  1. ZOLEDRONIC ACID [Suspect]
     Active Substance: ZOLEDRONIC ACID
     Indication: PRODUCT USED FOR UNKNOWN INDICATION
     Dosage: 4 MG (EVERY 12 WEEKS)
     Route: 065
     Dates: start: 20190916
  2. CALCIUM CARBONATE,COLECALCIFEROL [Suspect]
     Active Substance: CALCIUM CARBONATE\CHOLECALCIFEROL
     Indication: PRODUCT USED FOR UNKNOWN INDICATION
     Dosage: UNK
     Route: 065
     Dates: start: 20190916
  3. LETROZOLE. [Suspect]
     Active Substance: LETROZOLE
     Indication: BREAST CANCER
     Dosage: 2.5 MG, QD
     Route: 065
     Dates: start: 20190916
  4. KISQALI [Suspect]
     Active Substance: RIBOCICLIB
     Indication: BREAST CANCER
     Dosage: 600 MG, QD (FOR 21 DAYS)
     Route: 065
     Dates: start: 20190916

REACTIONS (5)
  - Skeletal injury [Unknown]
  - Hepatic adenoma [Unknown]
  - Malignant neoplasm progression [Unknown]
  - Breast cancer [Unknown]
  - Neutropenia [Unknown]

NARRATIVE: CASE EVENT DATE: 202009
